FAERS Safety Report 9294538 (Version 2)
Quarter: 2013Q2

REPORT INFORMATION
  Report Type: Spontaneous
  Country: US (occurrence: None)
  Receive Date: 20121227
  Receipt Date: 20130507
  Transmission Date: 20140414
  Serious: No
  Sender: FDA-Public Use
  Company Number: PHEH2012US022844

PATIENT
  Age: 20 Year
  Sex: Male

DRUGS (2)
  1. AFINITOR (RAD) UNKNOWN [Suspect]
     Indication: TUBEROUS SCLEROSIS
     Route: 048
     Dates: start: 20120928
  2. AFINITOR (RAD) UNKNOWN [Suspect]
     Indication: ANGIOMYOLIPOMA
     Route: 048
     Dates: start: 20120928

REACTIONS (5)
  - Acne [None]
  - Fatigue [None]
  - Dermatitis [None]
  - Blood cholesterol increased [None]
  - Blood triglycerides increased [None]
